FAERS Safety Report 24263552 (Version 3)
Quarter: 2024Q4

REPORT INFORMATION
  Report Type: Report from Study
  Country: US (occurrence: US)
  Receive Date: 20240829
  Receipt Date: 20241113
  Transmission Date: 20250115
  Serious: Yes (Hospitalization)
  Sender: VERTEX
  Company Number: US-VERTEX PHARMACEUTICALS-2024-013633

PATIENT
  Age: 35 Year
  Sex: Female
  Weight: 68 kg

DRUGS (12)
  1. TRIKAFTA [Suspect]
     Active Substance: ELEXACAFTOR\IVACAFTOR\TEZACAFTOR
     Indication: Cystic fibrosis
     Dosage: 2 ORANGE TABLETS IN THE MORNING AND 1 BLUE TABLET IN THE EVENING
     Route: 048
     Dates: start: 20231207
  2. MELATONIN [Concomitant]
     Active Substance: MELATONIN
  3. CALCIUM\CHOLECALCIFEROL [Concomitant]
     Active Substance: CALCIUM\CHOLECALCIFEROL
     Dosage: CALCIUM 500-VIT D3
  4. MAGNESIUM [Concomitant]
     Active Substance: MAGNESIUM
  5. REXULTI [Concomitant]
     Active Substance: BREXPIPRAZOLE
  6. LITHIUM CARBONATE [Concomitant]
     Active Substance: LITHIUM CARBONATE
  7. PREDNISONE [Concomitant]
     Active Substance: PREDNISONE
  8. MYCOPHENOLATE MOFETIL [Concomitant]
     Active Substance: MYCOPHENOLATE MOFETIL
  9. AZITHROMYCIN [Concomitant]
     Active Substance: AZITHROMYCIN
  10. BACTRIM DS [Concomitant]
     Active Substance: SULFAMETHOXAZOLE\TRIMETHOPRIM
     Dosage: 800-160 MG TABLET
  11. TACROLIMUS [Concomitant]
     Active Substance: TACROLIMUS
  12. VITAMIN B COMPLEX [Concomitant]
     Active Substance: CYANOCOBALAMIN\DEXPANTHENOL\NIACINAMIDE\PYRIDOXINE HYDROCHLORIDE\RIBOFLAVIN 5^-PHOSPHATE SODIUM\THIA

REACTIONS (2)
  - Intestinal obstruction [Recovering/Resolving]
  - Cystic fibrosis [Recovered/Resolved]

NARRATIVE: CASE EVENT DATE: 20240801
